FAERS Safety Report 16097026 (Version 2)
Quarter: 2019Q2

REPORT INFORMATION
  Report Type: Spontaneous
  Country: US (occurrence: US)
  Receive Date: 20190320
  Receipt Date: 20190425
  Transmission Date: 20190711
  Serious: No
  Sender: FDA-Public Use
  Company Number: US-AMGEN-USASP2019042871

PATIENT
  Age: 41 Year
  Sex: Male
  Weight: 89 kg

DRUGS (1)
  1. ENBREL [Suspect]
     Active Substance: ETANERCEPT
     Indication: PSORIATIC ARTHROPATHY
     Dosage: 50 MILLIGRAM, QWK
     Route: 065
     Dates: start: 2014

REACTIONS (5)
  - Decreased immune responsiveness [Unknown]
  - Injection site reaction [Not Recovered/Not Resolved]
  - Dizziness [Unknown]
  - Swelling [Unknown]
  - Injection site pain [Not Recovered/Not Resolved]

NARRATIVE: CASE EVENT DATE: 201411
